FAERS Safety Report 12114446 (Version 1)
Quarter: 2016Q1

REPORT INFORMATION
  Report Type: Spontaneous
  Country: FR (occurrence: FR)
  Receive Date: 20160225
  Receipt Date: 20160225
  Transmission Date: 20160526
  Serious: Yes (Death)
  Sender: FDA-Public Use
  Company Number: FR-AMGEN-FRASP2015133102

PATIENT
  Age: 83 Year
  Sex: Male

DRUGS (1)
  1. NEULASTA [Suspect]
     Active Substance: PEGFILGRASTIM
     Indication: MALIGNANT MELANOMA
     Dosage: 3 MG, UNK
     Route: 058
     Dates: start: 20151006, end: 20151210

REACTIONS (2)
  - Drug prescribing error [Unknown]
  - Malaise [Fatal]
